FAERS Safety Report 8541459-8 (Version None)
Quarter: 2012Q3

REPORT INFORMATION
  Report Type: 
  Country: None (occurrence: None)
  Receive Date: 20120726
  Receipt Date: 20120719
  Transmission Date: 20120928
  Serious: Yes (Other)
  Sender: FDA-Public Use
  Company Number: JP-BAYER-2012-059135

PATIENT
  Age: 86 Year
  Sex: Female

DRUGS (2)
  1. ASPIRIN [Suspect]
     Route: 048
  2. CLOPIDOGREL BISULFATE [Suspect]
     Route: 048

REACTIONS (5)
  - SUBCUTANEOUS HAEMATOMA [None]
  - HAEMORRHAGE SUBCUTANEOUS [None]
  - ACQUIRED HAEMOPHILIA [None]
  - LARYNGEAL HAEMORRHAGE [None]
  - ANAEMIA [None]
